FAERS Safety Report 16123449 (Version 1)
Quarter: 2019Q1

REPORT INFORMATION
  Report Type: Spontaneous
  Country: DE (occurrence: DE)
  Receive Date: 20190327
  Receipt Date: 20190327
  Transmission Date: 20190418
  Serious: Yes (Hospitalization)
  Sender: FDA-Public Use
  Company Number: DE-EISAI MEDICAL RESEARCH-EC-2019-053850

PATIENT
  Age: 6 Year
  Sex: Female

DRUGS (4)
  1. LACOSAMID [Concomitant]
     Active Substance: LACOSAMIDE
     Indication: EPILEPSY
     Dosage: DOSE AND FREQUENCY UNKNOWN
  2. FYCOMPA [Suspect]
     Active Substance: PERAMPANEL
     Indication: EPILEPSY
     Dosage: DOSE AND FREQUENCY UNKNOWN
     Route: 048
     Dates: start: 201901, end: 201902
  3. LEVETIRACETAM. [Concomitant]
     Active Substance: LEVETIRACETAM
     Indication: EPILEPSY
     Dosage: DOSE AND FREQUENCY UNKNOWN
  4. OXCARBAZEPIN [Concomitant]
     Active Substance: OXCARBAZEPINE
     Indication: EPILEPSY
     Dosage: DOSE AND FREQUENCY UNKNOWN

REACTIONS (2)
  - Gait disturbance [Unknown]
  - Product administered to patient of inappropriate age [Unknown]

NARRATIVE: CASE EVENT DATE: 2019
